FAERS Safety Report 20688196 (Version 1)
Quarter: 2022Q2

REPORT INFORMATION
  Report Type: Spontaneous
  Country: IT (occurrence: IT)
  Receive Date: 20220408
  Receipt Date: 20220408
  Transmission Date: 20220721
  Serious: Yes (Hospitalization, Other)
  Sender: FDA-Public Use
  Company Number: IT-SUN PHARMACEUTICAL INDUSTRIES LTD-2022R1-331812

PATIENT
  Age: 73 Year
  Sex: Female

DRUGS (1)
  1. DEFERASIROX [Suspect]
     Active Substance: DEFERASIROX
     Indication: Myelodysplastic syndrome
     Dosage: UNK (2 TABLETS OF 360 MG/DIE)
     Route: 065

REACTIONS (1)
  - Hypersensitivity myocarditis [Recovered/Resolved]
